FAERS Safety Report 7866641-4 (Version None)
Quarter: 2011Q4

REPORT INFORMATION
  Report Type: 
  Country: None (occurrence: None)
  Receive Date: 20111028
  Receipt Date: 20110719
  Transmission Date: 20120403
  Serious: No
  Sender: FDA-Public Use
  Company Number: US-GLAXOSMITHKLINE-A0937337A

PATIENT
  Sex: Male

DRUGS (4)
  1. AMIODARONE HCL [Concomitant]
  2. VERAPAMIL [Concomitant]
  3. ADVAIR DISKUS 100/50 [Suspect]
     Indication: ASTHMA
     Dosage: 1PUFF PER DAY
     Route: 055
     Dates: start: 20060101
  4. COUMADIN [Concomitant]

REACTIONS (3)
  - HEART RATE INCREASED [None]
  - HYPOAESTHESIA [None]
  - PARAESTHESIA [None]
